FAERS Safety Report 7945029-1 (Version None)
Quarter: 2011Q4

REPORT INFORMATION
  Report Type: 
  Country: None (occurrence: None)
  Receive Date: 20111129
  Receipt Date: 20110915
  Transmission Date: 20120403
  Serious: Yes (Death)
  Sender: FDA-Public Use
  Company Number: US-MYLANLABS-2011S1008280

PATIENT
  Sex: Female

DRUGS (1)
  1. ALLOPURINOL TAB [Suspect]
     Indication: GOUT
     Dates: start: 20071121

REACTIONS (1)
  - RASH [None]
